FAERS Safety Report 11672305 (Version 1)
Quarter: 2015Q4

REPORT INFORMATION
  Report Type: Spontaneous
  Country: US (occurrence: US)
  Receive Date: 20151028
  Receipt Date: 20151028
  Transmission Date: 20160304
  Serious: Yes (Other)
  Sender: FDA-Public Use
  Company Number: US-BEH-2015054896

PATIENT
  Sex: Male
  Weight: 76 kg

DRUGS (15)
  1. DIPHENHYDRAMINE. [Concomitant]
     Active Substance: DIPHENHYDRAMINE
  2. FENTANYL. [Concomitant]
     Active Substance: FENTANYL
  3. ATIVAN [Concomitant]
     Active Substance: LORAZEPAM
  4. PRIVIGEN [Suspect]
     Active Substance: HUMAN IMMUNOGLOBULIN G
     Dosage: 10 GM VIALS (ONCE DAILY FOR 5 DAYS PER MONTH)
     Route: 042
  5. DEXTROSE. [Concomitant]
     Active Substance: DEXTROSE
  6. LIDOCAINE. [Concomitant]
     Active Substance: LIDOCAINE
  7. NORMAL SALINE [Concomitant]
     Active Substance: SODIUM CHLORIDE
  8. ZOFRAN [Concomitant]
     Active Substance: ONDANSETRON HYDROCHLORIDE
  9. PRIVIGEN [Suspect]
     Active Substance: HUMAN IMMUNOGLOBULIN G
     Dosage: 20 GM VIALS (ONCE DAILY FOR 5 DAYS PER MONTH)
     Route: 042
  10. HEPARIN [Concomitant]
     Active Substance: HEPARIN SODIUM
  11. PRIVIGEN [Suspect]
     Active Substance: HUMAN IMMUNOGLOBULIN G
     Indication: CHRONIC INFLAMMATORY DEMYELINATING POLYRADICULONEUROPATHY
     Dosage: 10 GM VIALS (ONCE DAILY FOR 5 DAYS PER MONTH)
     Route: 042
  12. SODIUM CHLORIDE. [Concomitant]
     Active Substance: SODIUM CHLORIDE
  13. EPIPEN [Concomitant]
     Active Substance: EPINEPHRINE
  14. ACETAMINOPHEN. [Concomitant]
     Active Substance: ACETAMINOPHEN
  15. OXYCODONE [Concomitant]
     Active Substance: OXYCODONE

REACTIONS (1)
  - Neoplasm malignant [Not Recovered/Not Resolved]
